FAERS Safety Report 11980904 (Version 1)
Quarter: 2016Q1

REPORT INFORMATION
  Report Type: Spontaneous
  Country: FR (occurrence: FR)
  Receive Date: 20160129
  Receipt Date: 20160129
  Transmission Date: 20160526
  Serious: Yes (Hospitalization, Other)
  Sender: FDA-Public Use
  Company Number: FR-GLAXOSMITHKLINE-FR2016GSK011946

PATIENT
  Age: 25 Year
  Sex: Female

DRUGS (4)
  1. PENTASA [Suspect]
     Active Substance: MESALAMINE
     Indication: ENTEROCOLITIS HAEMORRHAGIC
     Dosage: UNK
     Route: 048
     Dates: start: 201511, end: 20151218
  2. ZELITREX [Suspect]
     Active Substance: VALACYCLOVIR HYDROCHLORIDE
     Indication: ORAL HERPES
     Dosage: UNK
     Route: 048
     Dates: start: 20151218, end: 20151220
  3. CORTANCYL [Suspect]
     Active Substance: PREDNISONE
     Indication: ENTEROCOLITIS HAEMORRHAGIC
     Dosage: UNK
     Route: 048
     Dates: start: 20151218, end: 20151220
  4. DEOXYCHOLIC ACID [Concomitant]
     Active Substance: DEOXYCHOLIC ACID
     Indication: CONGENITAL ABSENCE OF BILE DUCTS

REACTIONS (1)
  - Pancreatitis acute [Not Recovered/Not Resolved]

NARRATIVE: CASE EVENT DATE: 20151219
